FAERS Safety Report 8335704-1 (Version None)
Quarter: 2012Q2

REPORT INFORMATION
  Report Type: 
  Country: None (occurrence: None)
  Receive Date: 20120504
  Receipt Date: 20120425
  Transmission Date: 20120825
  Serious: No
  Sender: FDA-Public Use
  Company Number: US-BIOGENIDEC-2012BI014572

PATIENT
  Sex: Female

DRUGS (2)
  1. AVONEX [Concomitant]
     Indication: MULTIPLE SCLEROSIS
     Route: 030
  2. TYSABRI [Suspect]
     Indication: MULTIPLE SCLEROSIS
     Route: 042
     Dates: start: 20091029

REACTIONS (6)
  - BALANCE DISORDER [None]
  - DIZZINESS [None]
  - EYELID PTOSIS [None]
  - EYE SWELLING [None]
  - VIITH NERVE PARALYSIS [None]
  - PAIN IN EXTREMITY [None]
